FAERS Safety Report 24276475 (Version 3)
Quarter: 2024Q4

REPORT INFORMATION
  Report Type: Report from Study
  Country: CA (occurrence: CA)
  Receive Date: 20240903
  Receipt Date: 20241002
  Transmission Date: 20250115
  Serious: Yes (Hospitalization, Other)
  Sender: UCB
  Company Number: CA-UCBSA-2024042759

PATIENT
  Sex: Female

DRUGS (1)
  1. BIMEKIZUMAB [Suspect]
     Active Substance: BIMEKIZUMAB
     Indication: Psoriasis
     Dosage: 320 MILLIGRAM, EV 4 WEEKS
     Route: 058
     Dates: start: 20240802

REACTIONS (5)
  - Ill-defined disorder [Not Recovered/Not Resolved]
  - Ovarian cyst [Unknown]
  - Fallopian tube disorder [Unknown]
  - Malaise [Recovering/Resolving]
  - Product distribution issue [Unknown]

NARRATIVE: CASE EVENT DATE: 20240101
